FAERS Safety Report 11410713 (Version 2)
Quarter: 2019Q4

REPORT INFORMATION
  Report Type: Spontaneous
  Country: HR (occurrence: HR)
  Receive Date: 20150824
  Receipt Date: 20191010
  Transmission Date: 20200122
  Serious: Yes (Life-Threatening, Hospitalization, Other)
  Sender: FDA-Public Use
  Company Number: HR-TEVA-586448ISR

PATIENT
  Age: 71 Year
  Sex: Female

DRUGS (6)
  1. DECORTIN [Concomitant]
     Active Substance: PREDNISONE
     Indication: SYSTEMIC SCLERODERMA
     Dosage: 15 MILLIGRAM DAILY;
     Route: 048
  2. CONTROLOC [Concomitant]
     Active Substance: PANTOPRAZOLE SODIUM
     Indication: CHRONIC GASTRITIS
     Dosage: 20 MILLIGRAM DAILY; FORM OF ADMIN: TABLETS, OTHER
     Route: 048
  3. ZALDIAR [Concomitant]
     Active Substance: ACETAMINOPHEN\TRAMADOL HYDROCHLORIDE
     Route: 048
  4. IRUMED [Concomitant]
     Route: 048
  5. SILDENAFIL. [Suspect]
     Active Substance: SILDENAFIL
     Indication: SKIN ULCER
     Dosage: 150 MILLIGRAM DAILY;
     Route: 048
     Dates: start: 20150615, end: 20150701
  6. MOVALIS [Concomitant]
     Active Substance: MELOXICAM
     Indication: SYSTEMIC SCLERODERMA
     Dosage: 15 MILLIGRAM DAILY;
     Route: 048

REACTIONS (1)
  - Acute kidney injury [Not Recovered/Not Resolved]

NARRATIVE: CASE EVENT DATE: 20150630
